FAERS Safety Report 23487850 (Version 1)
Quarter: 2024Q1

REPORT INFORMATION
  Report Type: Spontaneous
  Country: US (occurrence: None)
  Receive Date: 20240205
  Receipt Date: 20240205
  Transmission Date: 20240410
  Serious: No
  Sender: FDA-Public Use
  Company Number: None

PATIENT
  Age: 59 Year
  Sex: Female
  Weight: 80.1 kg

DRUGS (9)
  1. REPATHA [Suspect]
     Active Substance: EVOLOCUMAB
     Indication: Lipoprotein increased
     Dosage: 1 INJECTION EVERY 2 WEEKS SUBCUTANEOUS?
     Route: 058
     Dates: start: 20230830, end: 20231015
  2. METOPROLOL [Concomitant]
     Active Substance: METOPROLOL
  3. UNSPECIFIED INGREDIENT [Concomitant]
     Active Substance: UNSPECIFIED INGREDIENT
  4. resuvastatin [Concomitant]
  5. toldoterine [Concomitant]
  6. TEGRETOL [Concomitant]
  7. SERTRALINE [Concomitant]
  8. BUPROPION [Concomitant]
  9. ZYRTEC [Concomitant]
     Active Substance: CETIRIZINE HYDROCHLORIDE

REACTIONS (6)
  - Panic attack [None]
  - Nasal congestion [None]
  - Urinary tract infection [None]
  - Contusion [None]
  - Contusion [None]
  - Rash erythematous [None]

NARRATIVE: CASE EVENT DATE: 20231115
